FAERS Safety Report 19149080 (Version 1)
Quarter: 2021Q2

REPORT INFORMATION
  Report Type: Report from Study
  Country: US (occurrence: US)
  Receive Date: 20210417
  Receipt Date: 20210417
  Transmission Date: 20210717
  Serious: Yes (Hospitalization)
  Sender: FDA-Public Use
  Company Number: US-ROCHE-2808086

PATIENT
  Age: 55 Year
  Sex: Male
  Weight: 64.6 kg

DRUGS (13)
  1. IRINOTECAN [Suspect]
     Active Substance: IRINOTECAN
     Indication: ADENOCARCINOMA OF COLON
     Dosage: LAST DOSE ADMINISTERED: 10/MAR/2021
     Route: 042
     Dates: start: 20210210, end: 20210310
  2. FERROUS SULFATE. [Concomitant]
     Active Substance: FERROUS SULFATE
  3. NEURONTIN [Concomitant]
     Active Substance: GABAPENTIN
  4. CETUXIMAB. [Suspect]
     Active Substance: CETUXIMAB
     Indication: ADENOCARCINOMA OF COLON
     Dosage: LAST DOSE ADMINISTERED: 10/MAR/2021
     Route: 042
     Dates: start: 20210210, end: 20210310
  5. TRASTUZUMAB. [Suspect]
     Active Substance: TRASTUZUMAB
     Indication: ADENOCARCINOMA OF COLON
     Dosage: LAST DOSE ADMINISTERED: 25/MAR/2021
     Route: 042
     Dates: start: 20210325
  6. JOHNSON + JOHNSON^S JANSSEN COVID?19 VACCINE [Concomitant]
  7. PRINZIDE [Concomitant]
     Active Substance: HYDROCHLOROTHIAZIDE\LISINOPRIL
  8. NORCO [Concomitant]
     Active Substance: ACETAMINOPHEN\HYDROCODONE BITARTRATE
  9. K?TAB [Concomitant]
     Active Substance: POTASSIUM CHLORIDE
  10. PERTUZUMAB. [Suspect]
     Active Substance: PERTUZUMAB
     Indication: ADENOCARCINOMA OF COLON
     Dosage: LAST DOSE ADMINISTERED: 25/MAR/2021
     Route: 042
     Dates: start: 20210325
  11. ZESTORETIC [Concomitant]
     Active Substance: HYDROCHLOROTHIAZIDE\LISINOPRIL
  12. COLACE [Concomitant]
     Active Substance: DOCUSATE SODIUM
  13. CYMBALTA [Concomitant]
     Active Substance: DULOXETINE HYDROCHLORIDE

REACTIONS (1)
  - Palmar-plantar erythrodysaesthesia syndrome [Not Recovered/Not Resolved]

NARRATIVE: CASE EVENT DATE: 20210403
